FAERS Safety Report 20682512 (Version 2)
Quarter: 2025Q1

REPORT INFORMATION
  Report Type: Report from Study
  Country: CA (occurrence: CA)
  Receive Date: 20220407
  Receipt Date: 20250218
  Transmission Date: 20250408
  Serious: Yes (Death, Hospitalization, Other)
  Sender: CSL BEHRING
  Company Number: CA-BEH-2022143319

PATIENT
  Age: 81 Year
  Sex: Male
  Weight: 61.2 kg

DRUGS (5)
  1. HIZENTRA [Suspect]
     Active Substance: HUMAN IMMUNOGLOBULIN G
     Indication: Secondary immunodeficiency
     Dosage: 10 GRAM, QW
     Route: 065
     Dates: start: 20200804
  2. HIZENTRA [Suspect]
     Active Substance: HUMAN IMMUNOGLOBULIN G
     Route: 065
     Dates: start: 20200804
  3. HIZENTRA [Suspect]
     Active Substance: HUMAN IMMUNOGLOBULIN G
     Route: 065
  4. SYNTHROID [Concomitant]
     Active Substance: LEVOTHYROXINE SODIUM
  5. CALCIUM [Concomitant]
     Active Substance: CALCIUM

REACTIONS (2)
  - Death [Fatal]
  - COVID-19 [Unknown]
